FAERS Safety Report 4967420-8 (Version None)
Quarter: 2006Q2

REPORT INFORMATION
  Report Type: 
  Country: None (occurrence: None)
  Receive Date: 20060410
  Receipt Date: 20051209
  Transmission Date: 20061013
  Serious: Yes (Other)
  Sender: FDA-Public Use
  Company Number: FI-AMGEN-UK161340

PATIENT
  Sex: Female
  Weight: 48 kg

DRUGS (10)
  1. ARANESP [Suspect]
     Indication: RENAL FAILURE CHRONIC
     Route: 058
     Dates: start: 20050517
  2. COZAAR [Concomitant]
     Route: 048
     Dates: start: 20050511
  3. ETALPHA [Concomitant]
     Route: 048
     Dates: start: 20050726
  4. FURESIS [Concomitant]
     Route: 048
     Dates: start: 20051102
  5. KALCIPOS [Concomitant]
     Route: 048
     Dates: start: 20050511
  6. LESCOL [Concomitant]
     Route: 048
     Dates: start: 20050511
  7. MEDROL [Concomitant]
     Route: 048
     Dates: start: 20050906
  8. IRON [Concomitant]
     Route: 048
     Dates: start: 20050511
  9. SOMAC [Concomitant]
     Route: 048
     Dates: start: 20050511
  10. MYCOPHENOLATE MOFETIL [Concomitant]
     Route: 065
     Dates: start: 20050406

REACTIONS (2)
  - ANAEMIA [None]
  - CONDITION AGGRAVATED [None]
